FAERS Safety Report 16568365 (Version 2)
Quarter: 2019Q3

REPORT INFORMATION
  Report Type: Spontaneous
  Country: US (occurrence: US)
  Receive Date: 20190712
  Receipt Date: 20190715
  Transmission Date: 20191004
  Serious: Yes (Hospitalization, Other)
  Sender: FDA-Public Use
  Company Number: US-SA-2019SA183326

PATIENT
  Age: 68 Year
  Sex: Female

DRUGS (1)
  1. TOUJEO [Suspect]
     Active Substance: INSULIN GLARGINE
     Dosage: 15 U, BID
     Route: 065

REACTIONS (9)
  - Headache [Unknown]
  - Blood glucose increased [Unknown]
  - Product dose omission [Unknown]
  - Intentional product use issue [Unknown]
  - Needle issue [Unknown]
  - Blindness [Unknown]
  - Nausea [Unknown]
  - Inappropriate schedule of product administration [Unknown]
  - Cardiac failure [Unknown]
